FAERS Safety Report 6398046-X (Version None)
Quarter: 2009Q4

REPORT INFORMATION
  Report Type: 
  Country: None (occurrence: None)
  Receive Date: 20091013
  Receipt Date: 20091005
  Transmission Date: 20100525
  Serious: Yes (Other)
  Sender: FDA-Public Use
  Company Number: ES-ROCHE-660782

PATIENT
  Age: 72 Year
  Sex: Male

DRUGS (1)
  1. XELODA [Suspect]
     Indication: CARCINOID TUMOUR PULMONARY
     Route: 048
     Dates: start: 20080331

REACTIONS (4)
  - DYSPHAGIA [None]
  - FEELING HOT [None]
  - PENILE OEDEMA [None]
  - TREMOR [None]
